FAERS Safety Report 8408034-7 (Version None)
Quarter: 2012Q2

REPORT INFORMATION
  Report Type: 
  Country: None (occurrence: None)
  Receive Date: 20120418
  Receipt Date: 20120418
  Transmission Date: 20120825
  Serious: Yes (Death)
  Sender: FDA-Public Use
  Company Number: None

PATIENT
  Sex: Female
  Weight: 62.6 kg

DRUGS (10)
  1. IXEMPRA KIT [Suspect]
     Indication: BREAST CANCER
     Dosage: 16MG/M2 D2, 9+16  2/21, 2/28 + 3/6
  2. MS CONTIN [Concomitant]
  3. VORINOSTAT [Suspect]
     Indication: BREAST CANCER
     Dosage: 300MG PO QD (D1-7+15-21) 2/20-2/28 + 3/5-3/11
     Route: 048
  4. SILVADENE [Concomitant]
  5. RANITIDINE [Concomitant]
  6. SENNA-MINT WAF [Concomitant]
  7. GABAPENTIN [Concomitant]
  8. SIMVASTATIN [Concomitant]
  9. COMPAZINE [Concomitant]
  10. CYMBALTA [Concomitant]

REACTIONS (2)
  - BREAST CANCER METASTATIC [None]
  - DISEASE PROGRESSION [None]
